FAERS Safety Report 14831315 (Version 1)
Quarter: 2018Q2

REPORT INFORMATION
  Report Type: Report from Study
  Country: GB (occurrence: GB)
  Receive Date: 20180501
  Receipt Date: 20180501
  Transmission Date: 20180711
  Serious: Yes (Hospitalization)
  Sender: FDA-Public Use
  Company Number: GB-AMGEN-GBRSL2018057218

PATIENT
  Sex: Female

DRUGS (1)
  1. ARANESP [Suspect]
     Active Substance: DARBEPOETIN ALFA
     Indication: ANAEMIA
     Dosage: 40 MUG, UNK
     Route: 065

REACTIONS (4)
  - Adverse event [Unknown]
  - Chronic obstructive pulmonary disease [Unknown]
  - Unevaluable event [Unknown]
  - Renal failure [Unknown]
